FAERS Safety Report 8197338-1 (Version None)
Quarter: 2012Q1

REPORT INFORMATION
  Report Type: 
  Country: None (occurrence: None)
  Receive Date: 20120309
  Receipt Date: 20120229
  Transmission Date: 20120608
  Serious: Yes (Other)
  Sender: FDA-Public Use
  Company Number: US-SHIRE-ALL1-2012-01201

PATIENT
  Sex: Female

DRUGS (1)
  1. ADDERALL XR 10 [Suspect]
     Indication: PRODUCT USED FOR UNKNOWN INDICATION
     Dosage: UNK, UNKNOWN
     Route: 048
     Dates: start: 20090101

REACTIONS (3)
  - CARDIAC DISORDER [None]
  - STRESS [None]
  - PRODUCT QUALITY ISSUE [None]
